FAERS Safety Report 20525966 (Version 1)
Quarter: 2022Q1

REPORT INFORMATION
  Report Type: Spontaneous
  Country: US (occurrence: None)
  Receive Date: 20220225
  Receipt Date: 20220225
  Transmission Date: 20220424
  Serious: Yes (Other)
  Sender: FDA-Public Use
  Company Number: None

PATIENT
  Age: 79 Year
  Sex: Female
  Weight: 58.5 kg

DRUGS (12)
  1. ETOPOSIDE [Suspect]
     Active Substance: ETOPOSIDE
     Indication: Ovarian cancer
     Dosage: FREQUENCY : DAILY;?
     Route: 048
     Dates: start: 20211211, end: 20220225
  2. TEGRETOL [Concomitant]
     Active Substance: CARBAMAZEPINE
  3. LEVOTHYROXINE [Concomitant]
     Active Substance: LEVOTHYROXINE
  4. LORAZEPAM [Concomitant]
     Active Substance: LORAZEPAM
  5. CARVEDILOL [Concomitant]
     Active Substance: CARVEDILOL
  6. MELATONIN [Concomitant]
     Active Substance: MELATONIN
  7. LOSARTAN [Concomitant]
     Active Substance: LOSARTAN
  8. BACLOFEN [Concomitant]
     Active Substance: BACLOFEN
  9. LYRICA [Concomitant]
     Active Substance: PREGABALIN
  10. VITAMIN D [Concomitant]
     Active Substance: VITAMIN D NOS
  11. VITAMIN B6 [Concomitant]
     Active Substance: PYRIDOXINE HYDROCHLORIDE
  12. ONDANSETRON [Concomitant]
     Active Substance: ONDANSETRON

REACTIONS (5)
  - Therapy interrupted [None]
  - Ocular hyperaemia [None]
  - Periorbital swelling [None]
  - Lacrimation increased [None]
  - Photophobia [None]

NARRATIVE: CASE EVENT DATE: 20220225
